FAERS Safety Report 15675703 (Version 1)
Quarter: 2018Q4

REPORT INFORMATION
  Report Type: Spontaneous
  Country: US (occurrence: US)
  Receive Date: 20181129
  Receipt Date: 20181129
  Transmission Date: 20190205
  Serious: Yes (Other)
  Sender: FDA-Public Use
  Company Number: None

PATIENT
  Age: 68 Year
  Sex: Female
  Weight: 55.35 kg

DRUGS (14)
  1. LABETALOL [Concomitant]
     Active Substance: LABETALOL\LABETALOL HYDROCHLORIDE
  2. CAPECITABINE. [Suspect]
     Active Substance: CAPECITABINE
     Indication: PANCREATIC CARCINOMA
     Dosage: ?          OTHER FREQUENCY:BID X7D, 7D OFF;?
     Route: 048
     Dates: start: 20171229
  3. POTASSIUM CHLORIDE ER [Concomitant]
     Active Substance: POTASSIUM CHLORIDE
  4. ATORVASTATIN [Concomitant]
     Active Substance: ATORVASTATIN
  5. HCTZ [Concomitant]
     Active Substance: HYDROCHLOROTHIAZIDE
  6. CALTRATE [Concomitant]
     Active Substance: CALCIUM CARBONATE
  7. COLACE [Concomitant]
     Active Substance: DOCUSATE SODIUM
  8. METFORMIN [Concomitant]
     Active Substance: METFORMIN HYDROCHLORIDE
  9. EPLERENONE. [Concomitant]
     Active Substance: EPLERENONE
  10. BLINK TEARS [Concomitant]
     Active Substance: POLYETHYLENE GLYCOL 400
  11. REFRESH P.M. [Concomitant]
     Active Substance: MINERAL OIL\PETROLATUM
  12. ZADITOR [Concomitant]
     Active Substance: KETOTIFEN FUMARATE
  13. LOSARTAN. [Concomitant]
     Active Substance: LOSARTAN
  14. MELATONIN [Concomitant]
     Active Substance: MELATONIN

REACTIONS (4)
  - Skin exfoliation [None]
  - Rhinorrhoea [None]
  - Pulmonary congestion [None]
  - Dry skin [None]

NARRATIVE: CASE EVENT DATE: 20181129
